FAERS Safety Report 6531367-6 (Version None)
Quarter: 2010Q1

REPORT INFORMATION
  Report Type: 
  Country: None (occurrence: None)
  Receive Date: 20100108
  Receipt Date: 20091009
  Transmission Date: 20100710
  Serious: No
  Sender: FDA-Public Use
  Company Number: A0811069A

PATIENT
  Age: 42 Year
  Sex: Female

DRUGS (5)
  1. TYKERB [Suspect]
     Indication: BREAST CANCER
     Dosage: 250MG FIVE TIMES PER DAY
     Route: 048
     Dates: start: 20090917
  2. CYMBALTA [Concomitant]
  3. COREG [Concomitant]
  4. CARVEDILOL [Concomitant]
  5. ISUPREL [Concomitant]

REACTIONS (1)
  - DIARRHOEA [None]
